FAERS Safety Report 17873029 (Version 2)
Quarter: 2020Q2

REPORT INFORMATION
  Report Type: Spontaneous
  Country: CA (occurrence: CA)
  Receive Date: 20200608
  Receipt Date: 20200609
  Transmission Date: 20200714
  Serious: Yes (Life-Threatening, Hospitalization)
  Sender: FDA-Public Use
  Company Number: CA-BIOVITRUM-2018CA1036

PATIENT
  Age: 11 Year
  Sex: Female
  Weight: 32 kg

DRUGS (6)
  1. KINERET [Suspect]
     Active Substance: ANAKINRA
     Route: 058
  2. COLCHICINE. [Concomitant]
     Active Substance: COLCHICINE
  3. KINERET [Suspect]
     Active Substance: ANAKINRA
     Route: 058
  4. KINERET [Suspect]
     Active Substance: ANAKINRA
     Indication: HYPER IGD SYNDROME
     Dosage: DAILY DURING FEVERS
     Route: 058
     Dates: start: 201807, end: 20180820
  5. KINERET [Suspect]
     Active Substance: ANAKINRA
     Route: 058
  6. COLCHICINE. [Concomitant]
     Active Substance: COLCHICINE
     Indication: HYPER IGD SYNDROME
     Dosage: 0.6 MG DAILY
     Route: 048
     Dates: start: 201608

REACTIONS (8)
  - Vomiting [Recovered/Resolved]
  - Swollen tongue [Recovered/Resolved]
  - Anaphylactic reaction [Recovered/Resolved]
  - Blood pressure decreased [Recovered/Resolved]
  - Urticaria [Recovered/Resolved]
  - Mouth swelling [Recovered/Resolved]
  - Tachycardia [Recovered/Resolved]
  - Injection site reaction [Recovered/Resolved]

NARRATIVE: CASE EVENT DATE: 20180820
